FAERS Safety Report 20731053 (Version 10)
Quarter: 2023Q1

REPORT INFORMATION
  Report Type: Report from Study
  Country: US (occurrence: US)
  Receive Date: 20220420
  Receipt Date: 20230220
  Transmission Date: 20230418
  Serious: No
  Sender: FDA-Public Use
  Company Number: US-GLAXOSMITHKLINE-US2022AMR046858

PATIENT

DRUGS (5)
  1. BELANTAMAB MAFODOTIN [Suspect]
     Active Substance: BELANTAMAB MAFODOTIN
     Indication: Plasma cell myeloma refractory
     Dosage: 100 MG
     Dates: start: 20220125
  2. BELANTAMAB MAFODOTIN [Suspect]
     Active Substance: BELANTAMAB MAFODOTIN
     Dosage: 2.5 MG/KG
     Dates: start: 20220125
  3. BELANTAMAB MAFODOTIN [Suspect]
     Active Substance: BELANTAMAB MAFODOTIN
     Dosage: 1 MG/KG, Z EVERY 8 WEEKS
     Dates: start: 20220809
  4. BELANTAMAB MAFODOTIN [Suspect]
     Active Substance: BELANTAMAB MAFODOTIN
     Dosage: UNK UNK, Z  EVERY 6 WEEKS
     Dates: start: 20230124
  5. CYBORD (BORTEZOMIB + CICLOFOSFAMIDA + DEXAMETASON) [Concomitant]
     Indication: Product used for unknown indication
     Dosage: UNK

REACTIONS (8)
  - Visual acuity reduced [Not Recovered/Not Resolved]
  - Keratopathy [Not Recovered/Not Resolved]
  - Night blindness [Not Recovered/Not Resolved]
  - Photophobia [Not Recovered/Not Resolved]
  - Dry eye [Not Recovered/Not Resolved]
  - Foreign body sensation in eyes [Not Recovered/Not Resolved]
  - Hypoglobulinaemia [Unknown]
  - Ocular toxicity [Unknown]

NARRATIVE: CASE EVENT DATE: 20220225
